FAERS Safety Report 5818209-9 (Version None)
Quarter: 2008Q3

REPORT INFORMATION
  Report Type: 
  Country: None (occurrence: None)
  Receive Date: 20080722
  Receipt Date: 20080605
  Transmission Date: 20090109
  Serious: No
  Sender: FDA-Public Use
  Company Number: US-BAYER-200713081BCC

PATIENT
  Age: 65 Year
  Sex: Female
  Weight: 116 kg

DRUGS (8)
  1. ALEVE [Suspect]
     Indication: PAIN IN EXTREMITY
     Dosage: TOTAL DAILY DOSE: 440 MG  UNIT DOSE: 220 MG
     Route: 048
     Dates: start: 20070921
  2. ALEVE [Suspect]
     Dosage: TOTAL DAILY DOSE: 440 MG  UNIT DOSE: 220 MG
     Route: 048
     Dates: start: 20070922, end: 20070923
  3. COUMADIN [Concomitant]
  4. INSULIN [Concomitant]
  5. COREG [Concomitant]
  6. LASIX [Concomitant]
  7. ALLOPURINOL [Concomitant]
  8. PROCRIT [Concomitant]

REACTIONS (1)
  - BLOOD GLUCOSE INCREASED [None]
